FAERS Safety Report 8900376 (Version 1)
Quarter: 2012Q4

REPORT INFORMATION
  Report Type: 
  Country: US (occurrence: US)
  Receive Date: 20121109
  Receipt Date: 20121109
  Transmission Date: 20130627
  Serious: No
  Sender: FDA-Public Use
  Company Number: US-PFIZER INC-2012277984

PATIENT
  Sex: Female

DRUGS (3)
  1. BICILLIN C-R/C-R 900/300 [Suspect]
     Dosage: 600,000 units
  2. BICILLIN C-R 900/300 [Suspect]
     Dosage: 1,200,000 units
  3. BICILLIN C-R 900/300 [Suspect]
     Dosage: 600,000 units

REACTIONS (1)
  - Drug intolerance [Unknown]
